FAERS Safety Report 15920370 (Version 3)
Quarter: 2019Q1

REPORT INFORMATION
  Report Type: Report from Study
  Country: US (occurrence: US)
  Receive Date: 20190205
  Receipt Date: 20190222
  Transmission Date: 20190417
  Serious: Yes (Other)
  Sender: FDA-Public Use
  Company Number: US-AMGEN INC.-USASP2019016481

PATIENT
  Age: 47 Year
  Sex: Female

DRUGS (1)
  1. AIMOVIG [Suspect]
     Active Substance: ERENUMAB-AOOE
     Indication: MIGRAINE
     Dosage: 70 MG, QMO
     Route: 065
     Dates: start: 20190128

REACTIONS (12)
  - Psychomotor hyperactivity [Not Recovered/Not Resolved]
  - Muscle spasms [Not Recovered/Not Resolved]
  - Oxygen saturation decreased [Recovered/Resolved]
  - Eye haemorrhage [Unknown]
  - Agitation [Not Recovered/Not Resolved]
  - Epistaxis [Unknown]
  - Head discomfort [Not Recovered/Not Resolved]
  - Swollen tongue [Unknown]
  - Dizziness [Not Recovered/Not Resolved]
  - Ear haemorrhage [Unknown]
  - Visual impairment [Not Recovered/Not Resolved]
  - Disorientation [Not Recovered/Not Resolved]

NARRATIVE: CASE EVENT DATE: 2019
